FAERS Safety Report 5664022-5 (Version None)
Quarter: 2008Q1

REPORT INFORMATION
  Report Type: 
  Country: None (occurrence: None)
  Receive Date: 20080314
  Receipt Date: 20080303
  Transmission Date: 20080703
  Serious: Yes (Other)
  Sender: FDA-Public Use
  Company Number: PHEH2007US15710

PATIENT
  Age: 63 Year
  Sex: Female

DRUGS (6)
  1. GLEEVEC [Suspect]
     Indication: CHRONIC MYELOID LEUKAEMIA
     Dosage: 600 MG, QD
     Route: 048
     Dates: start: 20030101
  2. GLEEVEC [Suspect]
     Dosage: 400 MG, QD
     Route: 048
  3. MAXZIDE [Concomitant]
     Dosage: UNK, QD
  4. HYDROCHLOROTHIAZIDE [Concomitant]
     Dosage: UNK, QD
  5. LEXAPRO [Concomitant]
     Dosage: UNK, QD
  6. EVISTA [Concomitant]
     Dosage: UNK, QD

REACTIONS (17)
  - AMNESIA [None]
  - ASTHENIA [None]
  - BACK PAIN [None]
  - BLOOD CREATINE PHOSPHOKINASE INCREASED [None]
  - BLOOD CREATININE INCREASED [None]
  - CYST [None]
  - DYSSTASIA [None]
  - ELECTROMYOGRAM ABNORMAL [None]
  - GAIT DISTURBANCE [None]
  - HELICOBACTER GASTRITIS [None]
  - HYPOAESTHESIA [None]
  - LUMBAR RADICULOPATHY [None]
  - MUSCLE SPASMS [None]
  - MUSCULAR WEAKNESS [None]
  - MYOPATHY [None]
  - PARAESTHESIA [None]
  - RASH [None]
